FAERS Safety Report 7907450-7 (Version None)
Quarter: 2011Q4

REPORT INFORMATION
  Report Type: 
  Country: None (occurrence: None)
  Receive Date: 20111109
  Receipt Date: 20111109
  Transmission Date: 20120403
  Serious: Yes (Life-Threatening, Hospitalization)
  Sender: FDA-Public Use
  Company Number: None

PATIENT
  Sex: Female

DRUGS (1)
  1. ENBREL [Suspect]
     Dosage: 50MG SQ QWEEK
     Route: 058
     Dates: start: 20110615, end: 20111024

REACTIONS (2)
  - ANAEMIA [None]
  - DEHYDRATION [None]
